FAERS Safety Report 9457319 (Version 2)
Quarter: 2013Q4

REPORT INFORMATION
  Report Type: Spontaneous
  Country: US (occurrence: US)
  Receive Date: 20130814
  Receipt Date: 20131107
  Transmission Date: 20140711
  Serious: Yes (Hospitalization, Other)
  Sender: FDA-Public Use
  Company Number: PHEH2013US014290

PATIENT
  Age: 81 Year
  Sex: Male
  Weight: 88 kg

DRUGS (11)
  1. GLEEVEC [Suspect]
     Indication: GASTROINTESTINAL STROMAL TUMOUR
     Dosage: 400 MG, QD (WITH DINNER)
     Route: 048
     Dates: start: 20130128, end: 20130513
  2. GLEEVEC [Suspect]
     Dosage: 400 MG, QD (WITH DINNER)
     Route: 048
     Dates: start: 20130522
  3. PEPCID [Concomitant]
     Dosage: 20 MG, BID
     Route: 048
  4. STOOL SOFTENER [Concomitant]
     Dosage: 2 DF, BID
     Route: 048
  5. CALCIUM + VITAMIN D [Concomitant]
     Dosage: 1 DF, BID
     Route: 048
  6. VITAMIN D [Concomitant]
     Dosage: 2000 U, QID
     Route: 048
  7. MVI [Concomitant]
     Dosage: 4 DF, QD
     Route: 048
  8. CALCIUM [Concomitant]
     Dosage: UNK UKN, UNK
  9. HYDROCORTISONE [Concomitant]
     Dosage: UNK UKN, TID
     Route: 061
  10. ANUSOL HC [Concomitant]
     Dosage: 1 DF, BID
     Route: 054
  11. PRILOSEC [Concomitant]
     Dosage: 1 DF, 30-60 MIN BEFORE A MEAL
     Route: 048

REACTIONS (24)
  - Viral infection [Recovered/Resolved]
  - Pyrexia [Recovered/Resolved with Sequelae]
  - Malaise [Recovered/Resolved]
  - Headache [Recovered/Resolved with Sequelae]
  - Upper respiratory tract infection [Unknown]
  - Aortic aneurysm [Unknown]
  - Hepatic cyst [Unknown]
  - Hiatus hernia [Unknown]
  - Gastrointestinal disorder [Unknown]
  - Eyelid disorder [Recovered/Resolved with Sequelae]
  - Nasal congestion [Unknown]
  - Hypocalcaemia [Recovered/Resolved with Sequelae]
  - Facial pain [Unknown]
  - Ear discomfort [Recovering/Resolving]
  - Blood sodium decreased [Unknown]
  - Dry mouth [Unknown]
  - Lip dry [Unknown]
  - Constipation [Recovered/Resolved with Sequelae]
  - Haematuria [Unknown]
  - Sinusitis [Recovered/Resolved]
  - Fatigue [Recovering/Resolving]
  - Cough [Unknown]
  - Dyspnoea [Unknown]
  - Eye swelling [Recovered/Resolved with Sequelae]
